FAERS Safety Report 9944754 (Version 1)
Quarter: 2014Q1

REPORT INFORMATION
  Report Type: Report from Study
  Country: US (occurrence: US)
  Receive Date: 20140303
  Receipt Date: 20140303
  Transmission Date: 20141002
  Serious: No
  Sender: FDA-Public Use
  Company Number: US-ABBVIE-13P-163-1054021-00

PATIENT
  Age: 33 Year
  Sex: Female

DRUGS (7)
  1. HUMIRA [Suspect]
     Indication: CROHN^S DISEASE
     Dates: start: 20130207
  2. AZATHIOPRINE [Concomitant]
     Indication: CROHN^S DISEASE
     Dosage: DAILY
  3. LEVOTHYROXINE [Concomitant]
     Indication: BLOOD THYROID STIMULATING HORMONE DECREASED
     Dosage: DAILY
  4. NECON [Concomitant]
     Indication: CONTRACEPTION
     Dosage: DAILY
  5. LANSOPRAZOLE [Concomitant]
     Indication: CROHN^S DISEASE
  6. LANSOPRAZOLE [Concomitant]
     Indication: PROPHYLAXIS
  7. PREDNISONE [Concomitant]
     Indication: PRODUCT USED FOR UNKNOWN INDICATION
     Dosage: 30 MG DAILY

REACTIONS (2)
  - Lymphadenopathy [Recovering/Resolving]
  - Nasopharyngitis [Recovering/Resolving]
